FAERS Safety Report 9854144 (Version 2)
Quarter: 2014Q2

REPORT INFORMATION
  Report Type: Spontaneous
  Country: PA (occurrence: PA)
  Receive Date: 20140129
  Receipt Date: 20140403
  Transmission Date: 20141212
  Serious: Yes (Other)
  Sender: FDA-Public Use
  Company Number: PA-AMGEN-PANSP2014005947

PATIENT
  Age: 70 Year
  Sex: Male

DRUGS (7)
  1. ENBREL [Suspect]
     Indication: PSORIASIS
     Dosage: UNK
     Route: 065
     Dates: start: 20120817
  2. RITUXIMAB [Concomitant]
     Dosage: UNK UNK, UNK
     Dates: start: 20130730
  3. RITUXIMAB [Concomitant]
     Dosage: UNK
     Dates: start: 20131031
  4. RITUXIMAB [Concomitant]
     Dosage: UNK
     Dates: start: 20131107
  5. RITUXIMAB [Concomitant]
     Dosage: UNK
     Dates: start: 20131114
  6. RITUXIMAB [Concomitant]
     Dosage: UNK
     Dates: start: 20131121
  7. RITUXIMAB [Concomitant]
     Dosage: UNK
     Dates: start: 20140217

REACTIONS (4)
  - Waldenstrom^s macroglobulinaemia [Unknown]
  - Lymphoma [Unknown]
  - Osteolysis [Unknown]
  - Spinal osteoarthritis [Unknown]
